FAERS Safety Report 9271223 (Version 2)
Quarter: 2013Q3

REPORT INFORMATION
  Report Type: Report from Study
  Country: US (occurrence: US)
  Receive Date: 20130506
  Receipt Date: 20130718
  Transmission Date: 20140515
  Serious: Yes (Death)
  Sender: FDA-Public Use
  Company Number: PHEH2013US003792

PATIENT
  Age: 62 Year
  Sex: Female

DRUGS (5)
  1. AFINITOR [Suspect]
     Indication: RENAL CANCER
     Dosage: 10 MG, QD
     Route: 048
     Dates: start: 20130117, end: 20130225
  2. AFINITOR [Suspect]
     Dosage: UNK
  3. BENADRYL [Concomitant]
     Dosage: 25 MG, TID
     Route: 048
     Dates: start: 20130211, end: 20130222
  4. ATIVAN [Concomitant]
     Dosage: 0.5 MG, QD
     Route: 042
     Dates: start: 201212
  5. ZOFRAN [Concomitant]
     Dosage: 8 MG, QD
     Route: 042
     Dates: start: 20121005, end: 20130206

REACTIONS (7)
  - Malignant neoplasm progression [Fatal]
  - Renal cancer [Fatal]
  - Hypophagia [Unknown]
  - Malaise [Not Recovered/Not Resolved]
  - Vomiting [Recovered/Resolved]
  - Dehydration [Recovered/Resolved]
  - Nausea [Recovered/Resolved]
